FAERS Safety Report 5480044-1 (Version None)
Quarter: 2007Q4

REPORT INFORMATION
  Report Type: 
  Country: None (occurrence: None)
  Receive Date: 20071008
  Receipt Date: 20070926
  Transmission Date: 20080405
  Serious: Yes (Other)
  Sender: FDA-Public Use
  Company Number: GR-PFIZER INC-2007080467

PATIENT
  Age: 24 Year
  Sex: Male

DRUGS (1)
  1. ZITHROMAX [Suspect]
     Indication: FEBRILE INFECTION

REACTIONS (1)
  - DRUG ERUPTION [None]
